FAERS Safety Report 4782784-6 (Version None)
Quarter: 2005Q3

REPORT INFORMATION
  Report Type: 
  Country: None (occurrence: None)
  Receive Date: 20050914
  Receipt Date: 20040901
  Transmission Date: 20060218
  Serious: Yes (Hospitalization, Other)
  Sender: FDA-Public Use
  Company Number: 163-20785-03060048

PATIENT
  Age: 61 Year
  Sex: Female

DRUGS (4)
  1. THALOMID [Suspect]
     Indication: COLON CANCER METASTATIC
     Dosage: 50 MG, DAILY, ORAL
     Route: 048
     Dates: start: 20030519, end: 20030615
  2. OXALIPLATIN (OXALIPLATIN) [Suspect]
     Indication: DRUG USE FOR UNKNOWN INDICATION
     Dates: start: 20030317, end: 20030616
  3. FLUOROURACIL [Concomitant]
  4. LEUCOVORIN CALCIUM [Concomitant]

REACTIONS (7)
  - ANGIONEUROTIC OEDEMA [None]
  - NERVOUS SYSTEM DISORDER [None]
  - NEUROPATHY PERIPHERAL [None]
  - NEUTROPENIA [None]
  - PLATELET COUNT DECREASED [None]
  - RASH [None]
  - WHITE BLOOD CELL COUNT DECREASED [None]
